FAERS Safety Report 9375722 (Version 1)
Quarter: 2013Q2

REPORT INFORMATION
  Report Type: Report from Study
  Country: US (occurrence: US)
  Receive Date: 20130628
  Receipt Date: 20130628
  Transmission Date: 20140414
  Serious: Yes (Death, Hospitalization)
  Sender: FDA-Public Use
  Company Number: US-BAXTER-2013BAX023700

PATIENT
  Age: 65 Year
  Sex: Female
  Weight: 87.71 kg

DRUGS (11)
  1. CYCLOPHOSPHAMIDE FOR INJECTION, USP [Suspect]
     Indication: LYMPHOMA
     Route: 065
     Dates: start: 20121016, end: 20121217
  2. VELCADE [Suspect]
     Indication: LYMPHOMA
     Dates: start: 20121016, end: 20121217
  3. PREDNISONE [Suspect]
     Indication: LYMPHOMA
     Route: 048
     Dates: start: 20121016, end: 20121217
  4. VINCRISTINE [Suspect]
     Indication: LYMPHOMA
     Dates: start: 20121016, end: 20121217
  5. DOXORUBICIN [Suspect]
     Indication: LYMPHOMA
     Dates: start: 20121016, end: 20121217
  6. RITUXIMAB [Suspect]
     Indication: LYMPHOMA
     Route: 065
     Dates: start: 20121016, end: 20121217
  7. FOLIC ACID [Concomitant]
     Indication: PRODUCT USED FOR UNKNOWN INDICATION
     Route: 065
  8. GLUCOSAMINE [Concomitant]
     Indication: PRODUCT USED FOR UNKNOWN INDICATION
     Route: 065
  9. MULTIVITAMINS [Concomitant]
     Indication: PRODUCT USED FOR UNKNOWN INDICATION
     Route: 065
  10. ZOFRAN [Concomitant]
     Indication: PRODUCT USED FOR UNKNOWN INDICATION
     Route: 065
  11. NEULASTA [Concomitant]
     Indication: PRODUCT USED FOR UNKNOWN INDICATION
     Route: 065
     Dates: end: 20121221

REACTIONS (6)
  - Aspiration [Fatal]
  - Cardio-respiratory arrest [Fatal]
  - Febrile neutropenia [Fatal]
  - Syncope [Fatal]
  - Dehydration [Fatal]
  - Renal failure acute [Fatal]
